FAERS Safety Report 14226267 (Version 1)
Quarter: 2017Q4

REPORT INFORMATION
  Report Type: Spontaneous
  Country: US (occurrence: US)
  Receive Date: 20171127
  Receipt Date: 20171127
  Transmission Date: 20180321
  Serious: No
  Sender: FDA-Public Use
  Company Number: US-TEVA-764604USA

PATIENT
  Sex: Female

DRUGS (2)
  1. DIAZEPAM. [Suspect]
     Active Substance: DIAZEPAM
     Indication: PANIC ATTACK
  2. DIAZEPAM. [Suspect]
     Active Substance: DIAZEPAM
     Indication: ANXIETY
     Dosage: 1 DOSAGE FORMS DAILY;
     Dates: start: 20170422

REACTIONS (5)
  - Product physical issue [Unknown]
  - Product physical consistency issue [Unknown]
  - Agitation [Unknown]
  - Drug effect delayed [Unknown]
  - Anxiety [Unknown]

NARRATIVE: CASE EVENT DATE: 20170422
